FAERS Safety Report 10495100 (Version 1)
Quarter: 2014Q4

REPORT INFORMATION
  Report Type: Spontaneous
  Country: US (occurrence: US)
  Receive Date: 20141003
  Receipt Date: 20141003
  Transmission Date: 20150528
  Serious: No
  Sender: FDA-Public Use
  Company Number: US-MYLANLABS-2014S1015516

PATIENT
  Age: 76 Year
  Sex: Female

DRUGS (4)
  1. METOPROLOL SUCCINATE EXTENDED-RELEASE TABLETS, USP [Suspect]
     Active Substance: METOPROLOL SUCCINATE
     Indication: ARRHYTHMIA
     Dosage: 50 MG,QD
     Route: 048
     Dates: start: 201401
  2. VALIUM [Concomitant]
     Active Substance: DIAZEPAM
     Indication: FEELING OF RELAXATION
     Dosage: 5 MG,QD
     Route: 048
  3. METOPROLOL SUCCINATE EXTENDED-RELEASE TABLETS, USP [Suspect]
     Active Substance: METOPROLOL SUCCINATE
     Indication: BLOOD PRESSURE
  4. MIRALAX [Concomitant]
     Active Substance: POLYETHYLENE GLYCOL 3350
     Dosage: UNK

REACTIONS (4)
  - Drug effect decreased [Not Recovered/Not Resolved]
  - Arrhythmia [Not Recovered/Not Resolved]
  - Fatigue [Not Recovered/Not Resolved]
  - Constipation [Not Recovered/Not Resolved]

NARRATIVE: CASE EVENT DATE: 201402
